FAERS Safety Report 19897735 (Version 4)
Quarter: 2023Q2

REPORT INFORMATION
  Report Type: Spontaneous
  Country: JP (occurrence: JP)
  Receive Date: 20210930
  Receipt Date: 20230621
  Transmission Date: 20230721
  Serious: Yes (Death, Hospitalization, Disabling, Other)
  Sender: FDA-Public Use
  Company Number: JP-MSD-2109JPN002391J

PATIENT
  Age: 76 Year
  Sex: Male
  Weight: 78 kg

DRUGS (3)
  1. KEYTRUDA [Suspect]
     Active Substance: PEMBROLIZUMAB
     Indication: Malignant melanoma stage III
     Dosage: 163 MILLIGRAM, Q3W
     Route: 041
     Dates: start: 20180914, end: 20190329
  2. OPDIVO [Suspect]
     Active Substance: NIVOLUMAB
     Indication: Malignant melanoma stage III
     Dosage: 80 MILLIGRAM/DAY
     Route: 041
     Dates: start: 20190419, end: 20190531
  3. YERVOY [Suspect]
     Active Substance: IPILIMUMAB
     Indication: Malignant melanoma stage III
     Dosage: 245 MILLIGRAM/DAY
     Route: 041
     Dates: start: 20190419, end: 20190531

REACTIONS (5)
  - Diabetic ketosis [Unknown]
  - Type 1 diabetes mellitus [Not Recovered/Not Resolved]
  - Adrenal insufficiency [Not Recovered/Not Resolved]
  - Malignant neoplasm progression [Fatal]
  - Overdose [Unknown]

NARRATIVE: CASE EVENT DATE: 20180914
